FAERS Safety Report 4280836-0 (Version None)
Quarter: 2004Q1

REPORT INFORMATION
  Report Type: 
  Country: None (occurrence: None)
  Receive Date: 20040129
  Receipt Date: 20040119
  Transmission Date: 20041129
  Serious: Yes (Hospitalization)
  Sender: FDA-Public Use
  Company Number: FR-BRISTOL-MYERS SQUIBB COMPANY-12480489

PATIENT
  Age: 81 Year
  Sex: Male

DRUGS (6)
  1. VASTEN TABS 20 MG [Suspect]
     Route: 048
     Dates: end: 20031011
  2. PLAVIX [Suspect]
     Route: 048
     Dates: start: 20030722, end: 20031011
  3. ZOLOFT [Suspect]
     Route: 048
     Dates: end: 20031011
  4. BISOPROLOL FUMARATE [Concomitant]
     Route: 048
  5. MOPRAL [Concomitant]
     Route: 048
  6. AMLODIPINE BESYLATE [Concomitant]
     Route: 048

REACTIONS (9)
  - DIABETES MELLITUS [None]
  - DUODENAL ULCER [None]
  - HEMIPLEGIA [None]
  - INFLAMMATION [None]
  - NEPHROTIC SYNDROME [None]
  - REFLUX OESOPHAGITIS [None]
  - RENAL FAILURE [None]
  - URINARY TRACT INFECTION [None]
  - VASCULAR PURPURA [None]
